FAERS Safety Report 8861271 (Version 1)
Quarter: 2012Q4

REPORT INFORMATION
  Report Type: 
  Country: US (occurrence: US)
  Receive Date: 20121026
  Receipt Date: 20121026
  Transmission Date: 20130627
  Serious: No
  Sender: FDA-Public Use
  Company Number: US-PFIZER INC-2012267341

PATIENT
  Sex: Female

DRUGS (5)
  1. ZOLOFT [Suspect]
     Indication: POSTPARTUM DEPRESSION
     Dosage: 25 mg, UNK
  2. ZOLOFT [Suspect]
     Dosage: 50 mg, UNK
  3. ZOLOFT [Suspect]
     Dosage: 75 mg, UNK
  4. ZOLOFT [Suspect]
     Dosage: 100 mg, UNK
  5. ZOLOFT [Suspect]
     Dosage: 150 mg, UNK

REACTIONS (2)
  - Abdominal discomfort [Unknown]
  - Drug effect incomplete [Unknown]
